FAERS Safety Report 10246637 (Version 1)
Quarter: 2014Q2

REPORT INFORMATION
  Report Type: Spontaneous
  Country: US (occurrence: None)
  Receive Date: 20140618
  Receipt Date: 20140618
  Transmission Date: 20141212
  Serious: No
  Sender: FDA-Public Use
  Company Number: DL2014-0527

PATIENT
  Age: 20 Year
  Sex: Female

DRUGS (3)
  1. MIFEPRISTONE [Suspect]
     Indication: ABORTION INDUCED
     Route: 048
     Dates: start: 20140320
  2. MISOPROSTOL TABLETS, 200 MCG [Suspect]
     Dosage: 800 MCG, BUCCAL?
     Route: 002
     Dates: start: 20140321
  3. AZITHROMYCIN [Concomitant]

REACTIONS (3)
  - Haemorrhage [None]
  - Anaemia [None]
  - Syncope [None]
